FAERS Safety Report 8505907-1 (Version None)
Quarter: 2012Q3

REPORT INFORMATION
  Report Type: 
  Country: None (occurrence: None)
  Receive Date: 20120712
  Receipt Date: 20120703
  Transmission Date: 20120928
  Serious: Yes (Hospitalization)
  Sender: FDA-Public Use
  Company Number: FR-ASTRAZENECA-2012SE46406

PATIENT
  Age: 21784 Day
  Sex: Male

DRUGS (15)
  1. NEORAL [Suspect]
     Route: 048
     Dates: start: 20120505, end: 20120515
  2. SIMVASTATIN [Concomitant]
  3. ALLOPURINOL [Concomitant]
  4. NEXIUM [Suspect]
     Route: 048
     Dates: start: 20120501, end: 20120501
  5. ASPIRIN [Concomitant]
  6. VALGANCICLOVIR [Concomitant]
  7. PREDNISOLONE [Concomitant]
  8. GLIMEPIRIDE [Concomitant]
  9. PANTOPRAZOLE [Concomitant]
     Dates: start: 20120501, end: 20120524
  10. LASIX [Concomitant]
  11. VALACYCLOVIR HYDROCHLORIDE [Suspect]
     Route: 048
     Dates: start: 20120503, end: 20120524
  12. ESIDRIX [Concomitant]
  13. ATACAND [Concomitant]
  14. ALDACTONE [Concomitant]
  15. MALOCIDE [Concomitant]

REACTIONS (3)
  - CONVULSION [None]
  - ENCEPHALOPATHY [None]
  - CONFUSIONAL STATE [None]
